FAERS Safety Report 10156592 (Version 1)
Quarter: 2014Q2

REPORT INFORMATION
  Report Type: Spontaneous
  Country: US (occurrence: None)
  Receive Date: 20140505
  Receipt Date: 20140505
  Transmission Date: 20141212
  Serious: Yes (Other)
  Sender: FDA-Public Use
  Company Number: 1219540-2014-0003

PATIENT
  Age: 81 Year
  Sex: Female

DRUGS (1)
  1. EFFERVESCENT POTASSIUM CHLORIDE [Suspect]
     Dosage: 1 TABLET QD ORAL
     Route: 048
     Dates: start: 20140301

REACTIONS (2)
  - Dyspnoea [None]
  - Product substitution issue [None]
